FAERS Safety Report 20460181 (Version 4)
Quarter: 2022Q3

REPORT INFORMATION
  Report Type: Spontaneous
  Country: US (occurrence: US)
  Receive Date: 20220211
  Receipt Date: 20220912
  Transmission Date: 20221027
  Serious: No
  Sender: FDA-Public Use
  Company Number: US-BRISTOL-MYERS SQUIBB COMPANY-BMS-2022-016747

PATIENT
  Age: 69 Year
  Sex: Female

DRUGS (1)
  1. SPRYCEL [Suspect]
     Active Substance: DASATINIB
     Indication: Chronic myeloid leukaemia
     Dosage: 100 MILLIGRAM, QD
     Route: 048
     Dates: start: 20220119

REACTIONS (14)
  - Oral pain [Unknown]
  - Rash [Unknown]
  - Blood glucose increased [Unknown]
  - Acne [Unknown]
  - Vitamin D deficiency [Unknown]
  - Fluid retention [Unknown]
  - Anxiety [Unknown]
  - Depression [Unknown]
  - Insomnia [Unknown]
  - Headache [Unknown]
  - Decreased appetite [Unknown]
  - Weight increased [Unknown]
  - Alopecia [Unknown]
  - Hypoaesthesia [Unknown]
